FAERS Safety Report 5274494-6 (Version None)
Quarter: 2007Q1

REPORT INFORMATION
  Report Type: 
  Country: None (occurrence: None)
  Receive Date: 20070323
  Receipt Date: 20070312
  Transmission Date: 20070707
  Serious: Yes (Other)
  Sender: FDA-Public Use
  Company Number: US-PFIZER INC-2007019748

PATIENT
  Sex: Female
  Weight: 104.3 kg

DRUGS (10)
  1. CHANTIX [Suspect]
     Indication: SMOKING CESSATION THERAPY
     Dates: start: 20070223, end: 20070311
  2. SEROQUEL [Concomitant]
  3. TRAZODONE HCL [Concomitant]
  4. AMBIEN [Concomitant]
  5. MOBIC [Concomitant]
  6. CELEXA [Concomitant]
  7. CYMBALTA [Concomitant]
  8. PREVACID [Concomitant]
  9. CLONAZEPAM [Concomitant]
  10. VITAMINS [Concomitant]

REACTIONS (5)
  - GASTRIC DISORDER [None]
  - GASTROINTESTINAL HAEMORRHAGE [None]
  - HAEMATEMESIS [None]
  - HAEMATOCHEZIA [None]
  - VOMITING [None]
